FAERS Safety Report 25356977 (Version 1)
Quarter: 2025Q2

REPORT INFORMATION
  Report Type: Spontaneous
  Country: US (occurrence: US)
  Receive Date: 20250526
  Receipt Date: 20250526
  Transmission Date: 20250717
  Serious: No
  Sender: VANDA PHARMACEUTICALS
  Company Number: US-VANDA PHARMACEUTICALS, INC-2024ILOUS001975

PATIENT
  Sex: Female

DRUGS (3)
  1. FANAPT [Suspect]
     Active Substance: ILOPERIDONE
     Indication: Product used for unknown indication
     Dates: start: 20240930
  2. VRAYLAR [Concomitant]
     Active Substance: CARIPRAZINE
     Indication: Product used for unknown indication
  3. AUSTEDO [Concomitant]
     Active Substance: DEUTETRABENAZINE
     Indication: Product used for unknown indication

REACTIONS (4)
  - Migraine [Unknown]
  - Abnormal sensation in eye [Unknown]
  - Ocular hyperaemia [Unknown]
  - Dyskinesia [Unknown]
